FAERS Safety Report 15738970 (Version 1)
Quarter: 2018Q4

REPORT INFORMATION
  Report Type: Spontaneous
  Country: DE (occurrence: DE)
  Receive Date: 20181219
  Receipt Date: 20181219
  Transmission Date: 20190205
  Serious: Yes (Hospitalization, Other)
  Sender: FDA-Public Use
  Company Number: DE-009507513-1812DEU008656

PATIENT
  Age: 35 Year
  Sex: Female

DRUGS (4)
  1. OVALEAP [Suspect]
     Active Substance: FOLLITROPIN
     Indication: ASSISTED REPRODUCTIVE TECHNOLOGY
     Dosage: ZT 4-10
  2. GONADOTROPIN, CHORIONIC [Suspect]
     Active Substance: CHORIOGONADOTROPIN ALFA
     Indication: ASSISTED REPRODUCTIVE TECHNOLOGY
     Dosage: ZT 11
  3. ORGALUTRAN [Suspect]
     Active Substance: GANIRELIX ACETATE
     Indication: ASSISTED REPRODUCTIVE TECHNOLOGY
     Dosage: ZT 7-10
  4. OVALEAP [Suspect]
     Active Substance: FOLLITROPIN
     Dosage: ZT 2-3

REACTIONS (4)
  - Abdominal discomfort [Recovered/Resolved]
  - Ovarian enlargement [Recovered/Resolved]
  - Cardiovascular disorder [Recovered/Resolved]
  - Ovarian hyperstimulation syndrome [Recovered/Resolved]

NARRATIVE: CASE EVENT DATE: 20181204
